FAERS Safety Report 10010803 (Version 1)
Quarter: 2014Q1

REPORT INFORMATION
  Report Type: Spontaneous
  Country: US (occurrence: US)
  Receive Date: 20140314
  Receipt Date: 20140314
  Transmission Date: 20141002
  Serious: No
  Sender: FDA-Public Use
  Company Number: US-ROXANE LABORATORIES, INC.-2014-RO-00377RO

PATIENT
  Sex: Female

DRUGS (2)
  1. LITHIUM CARBONATE [Suspect]
     Indication: BIPOLAR DISORDER
     Dosage: 450 MG
     Route: 048
  2. NATURE THROID [Concomitant]
     Indication: HYPOTHYROIDISM
     Route: 065

REACTIONS (6)
  - Palpitations [Unknown]
  - Hot flush [Unknown]
  - Night sweats [Unknown]
  - Fatigue [Unknown]
  - Weight increased [Unknown]
  - Somnolence [Unknown]
